FAERS Safety Report 11472169 (Version 1)
Quarter: 2015Q3

REPORT INFORMATION
  Report Type: Spontaneous
  Country: US (occurrence: US)
  Receive Date: 20150908
  Receipt Date: 20150908
  Transmission Date: 20151125
  Serious: No
  Sender: FDA-Public Use
  Company Number: US-SA-2015SA127831

PATIENT
  Age: 38 Year
  Sex: Female

DRUGS (2)
  1. SOLOSTAR [Concomitant]
     Active Substance: DEVICE
  2. TOUJEO [Suspect]
     Active Substance: INSULIN GLARGINE
     Dosage: DOSE:15 UNIT(S)
     Route: 065

REACTIONS (3)
  - Lip swelling [Unknown]
  - Drug intolerance [Unknown]
  - Periorbital oedema [Unknown]

NARRATIVE: CASE EVENT DATE: 201508
